FAERS Safety Report 4372595-8 (Version None)
Quarter: 2004Q2

REPORT INFORMATION
  Report Type: 
  Country: None (occurrence: None)
  Receive Date: 20040608
  Receipt Date: 20040601
  Transmission Date: 20050107
  Serious: Yes (Hospitalization)
  Sender: FDA-Public Use
  Company Number: 200415556GDDC

PATIENT
  Age: 29 Year
  Sex: Male

DRUGS (2)
  1. BANAN [Suspect]
     Indication: PURULENCE
     Route: 048
     Dates: start: 20040426
  2. ALLEGRA [Suspect]
     Indication: PRURITUS
     Route: 048
     Dates: start: 20040426

REACTIONS (2)
  - DRUG HYPERSENSITIVITY [None]
  - ERYTHEMA MULTIFORME [None]
